FAERS Safety Report 4394882-X (Version None)
Quarter: 2004Q3

REPORT INFORMATION
  Report Type: 
  Country: None (occurrence: None)
  Receive Date: 20040706
  Receipt Date: 20040622
  Transmission Date: 20050211
  Serious: No
  Sender: FDA-Public Use
  Company Number: 04H-087-0264626-00

PATIENT
  Age: 48 Year
  Sex: Female
  Weight: 44 kg

DRUGS (10)
  1. VECURONIUM BROMIDE [Suspect]
     Indication: ANAESTHESIA
     Dosage: 8 MG THEN 1 MG, ONCE
  2. LIDOCAINE AND EPINEPHRINE [Suspect]
     Indication: ANAESTHESIA
     Dosage: 50 MG, ONCE, INJECTION
  3. FENTANYL [Suspect]
     Indication: ANAESTHESIA
     Dosage: 0.1 MG, ONCE
  4. PROPOFOL [Suspect]
     Indication: ANAESTHESIA
     Dosage: 90 MG, ONCE
  5. EPHEDRINE [Concomitant]
  6. DOPAMINE HCL [Concomitant]
  7. OXYGEN [Concomitant]
  8. AIR [Concomitant]
  9. SEVOFLURANE [Concomitant]
  10. LIDOCAINE [Concomitant]

REACTIONS (5)
  - ANAESTHETIC COMPLICATION CARDIAC [None]
  - ANEURYSM RUPTURED [None]
  - BLOOD PRESSURE DECREASED [None]
  - PROCEDURAL COMPLICATION [None]
  - VENTRICULAR EXTRASYSTOLES [None]
